FAERS Safety Report 5049208-5 (Version None)
Quarter: 2006Q2

REPORT INFORMATION
  Report Type: 
  Country: None (occurrence: None)
  Receive Date: 20060613
  Receipt Date: 20060223
  Transmission Date: 20061013
  Serious: Yes (Life-Threatening, Other)
  Sender: FDA-Public Use
  Company Number: 2006-00423

PATIENT
  Sex: Female

DRUGS (1)
  1. VELCADE [Suspect]

REACTIONS (2)
  - CARDIAC ARREST [None]
  - HYPOTENSION [None]
